FAERS Safety Report 16857676 (Version 1)
Quarter: 2019Q3

REPORT INFORMATION
  Report Type: Spontaneous
  Country: GB (occurrence: GB)
  Receive Date: 20190926
  Receipt Date: 20190926
  Transmission Date: 20191005
  Serious: Yes (Death, Hospitalization, Other)
  Sender: FDA-Public Use
  Company Number: GB-JNJFOC-20190925513

PATIENT
  Age: 60 Year
  Sex: Male

DRUGS (2)
  1. BIMIRALISIB [Concomitant]
     Active Substance: BIMIRALISIB
     Indication: WALDENSTROM^S MACROGLOBULINAEMIA
  2. IMBRUVICA [Suspect]
     Active Substance: IBRUTINIB
     Indication: WALDENSTROM^S MACROGLOBULINAEMIA
     Route: 065
     Dates: start: 20150618, end: 20150831

REACTIONS (4)
  - Waldenstrom^s macroglobulinaemia [Fatal]
  - Hyperglycaemia [Unknown]
  - Consciousness fluctuating [Unknown]
  - Sepsis [Fatal]
